FAERS Safety Report 26110265 (Version 1)
Quarter: 2025Q4

REPORT INFORMATION
  Report Type: Spontaneous
  Country: US (occurrence: US)
  Receive Date: 20251202
  Receipt Date: 20251202
  Transmission Date: 20260118
  Serious: No
  Sender: ELI LILLY AND COMPANY
  Company Number: US-ELI_LILLY_AND_COMPANY-US202511030640

PATIENT
  Age: 36 Year
  Sex: Female

DRUGS (1)
  1. EBGLYSS [Suspect]
     Active Substance: LEBRIKIZUMAB-LBKZ
     Indication: Product used for unknown indication
     Dosage: UNK UNK, UNKNOWN
     Route: 065
     Dates: start: 20251120

REACTIONS (6)
  - Oropharyngeal pain [Recovered/Resolved]
  - Rhinorrhoea [Not Recovered/Not Resolved]
  - Lacrimation increased [Recovered/Resolved]
  - Sneezing [Recovered/Resolved]
  - Nasal congestion [Not Recovered/Not Resolved]
  - Dysphonia [Not Recovered/Not Resolved]

NARRATIVE: CASE EVENT DATE: 20251121
